FAERS Safety Report 7576511 (Version 3)
Quarter: 2013Q3

REPORT INFORMATION
  Report Type: Report from Study
  Country: AU (occurrence: AU)
  Receive Date: 20100908
  Receipt Date: 20130812
  Transmission Date: 20140515
  Serious: Yes (Death)
  Sender: FDA-Public Use
  Company Number: AU-ROCHE-725037

PATIENT
  Age: 57 Year
  Sex: Male
  Weight: 157.3 kg

DRUGS (6)
  1. OSELTAMIVIR [Suspect]
     Indication: INFLUENZA
     Dosage: FORM: INFUSION
     Route: 042
  2. OSELTAMIVIR [Suspect]
     Route: 042
  3. PIPERACILLIN/TAZOBACTAM [Concomitant]
     Route: 042
     Dates: start: 20100813, end: 20100817
  4. CIPROFLOXACIN [Concomitant]
     Dosage: DRUG NAME: CIPROFLOXOCIN
     Route: 042
     Dates: start: 20100813, end: 20100817
  5. MOXIFLOXACIN [Concomitant]
     Dosage: DRUG NAME: MOXIFLOXOCIN
     Route: 042
  6. VORICONAZOLE [Concomitant]
     Route: 042

REACTIONS (1)
  - Death [Fatal]
